FAERS Safety Report 6018819-2 (Version None)
Quarter: 2008Q4

REPORT INFORMATION
  Report Type: 
  Country: None (occurrence: None)
  Receive Date: 20081223
  Receipt Date: 20081212
  Transmission Date: 20090506
  Serious: Yes (Hospitalization)
  Sender: FDA-Public Use
  Company Number: FR-ELI_LILLY_AND_COMPANY-FR200810002178

PATIENT
  Sex: Female

DRUGS (3)
  1. ZYPREXA [Suspect]
     Indication: BIPOLAR DISORDER
     Dosage: 10 MG, DAILY (1/D)
     Route: 064
     Dates: start: 20080517, end: 20080524
  2. SERESTA [Concomitant]
     Indication: BIPOLAR DISORDER
     Dosage: 10 UNK, UNK
     Route: 064
     Dates: start: 20080517, end: 20080524
  3. IMOVANE [Concomitant]
     Indication: BIPOLAR DISORDER
     Dosage: 7.5 MG, DAILY (1/D)
     Route: 064
     Dates: start: 20080517, end: 20080524

REACTIONS (4)
  - DRUG EXPOSURE DURING PREGNANCY [None]
  - DRUG EXPOSURE VIA BREAST MILK [None]
  - NEONATAL ASPIRATION [None]
  - PREMATURE BABY [None]
